FAERS Safety Report 6209612-6 (Version None)
Quarter: 2009Q2

REPORT INFORMATION
  Report Type: 
  Country: None (occurrence: None)
  Receive Date: 20090527
  Receipt Date: 20090512
  Transmission Date: 20091009
  Serious: Yes (Disabling)
  Sender: FDA-Public Use
  Company Number: 2009S1008611

PATIENT
  Age: 63 Year
  Sex: Female

DRUGS (6)
  1. LANSOPRAZOLE [Suspect]
     Indication: DRUG USE FOR UNKNOWN INDICATION
     Dosage: 30 MG;DAILY;ORAL
     Route: 048
  2. OMEPRAZOLE [Suspect]
     Indication: GASTROOESOPHAGEAL REFLUX DISEASE
     Dosage: 20 MG;DAILY
     Dates: start: 20090421, end: 20090425
  3. CODEINE SUL TAB [Concomitant]
  4. DOMPERIDONE [Concomitant]
  5. METOCLOPRAMIDE [Concomitant]
  6. MORPHINE SULFATE [Concomitant]

REACTIONS (1)
  - JOINT SWELLING [None]
